FAERS Safety Report 5169421-6 (Version None)
Quarter: 2006Q4

REPORT INFORMATION
  Report Type: 
  Country: None (occurrence: None)
  Receive Date: 20061201
  Receipt Date: 20061102
  Transmission Date: 20070319
  Serious: Yes (Death, Other)
  Sender: FDA-Public Use
  Company Number: 2006140472

PATIENT
  Sex: Female

DRUGS (3)
  1. CELEBREX [Suspect]
     Dosage: ORAL
     Route: 048
     Dates: start: 19991117, end: 20001101
  2. BEXTRA [Suspect]
     Dosage: ORAL
     Route: 048
     Dates: start: 20040908, end: 20040930
  3. VIOXX [Suspect]
     Dosage: ORAL
     Route: 048
     Dates: start: 20010411, end: 20040809

REACTIONS (2)
  - HAEMORRHAGIC STROKE [None]
  - MYOCARDIAL INFARCTION [None]
